FAERS Safety Report 4588257-8 (Version None)
Quarter: 2005Q1

REPORT INFORMATION
  Report Type: 
  Country: None (occurrence: None)
  Receive Date: 20050216
  Receipt Date: 20050131
  Transmission Date: 20050727
  Serious: Yes (Other)
  Sender: FDA-Public Use
  Company Number: 2005S1000045

PATIENT
  Age: 33 Year
  Sex: Female

DRUGS (1)
  1. ACITRETIN (ACITRETIN) (10 MG) [Suspect]
     Indication: PSORIASIS
     Dosage: 10 MG;TID;PO
     Route: 048
     Dates: start: 20031002, end: 20031006

REACTIONS (2)
  - DRUG EXPOSURE DURING PREGNANCY [None]
  - PREGNANCY [None]
